FAERS Safety Report 17510314 (Version 2)
Quarter: 2020Q1

REPORT INFORMATION
  Report Type: Spontaneous
  Country: US (occurrence: US)
  Receive Date: 20200306
  Receipt Date: 20200312
  Transmission Date: 20200409
  Serious: No
  Sender: FDA-Public Use
  Company Number: US-009507513-2003USA001889

PATIENT
  Age: 5 Year
  Sex: Male

DRUGS (4)
  1. MEXILETINE [Concomitant]
     Active Substance: MEXILETINE
     Dosage: 10 MILLIGRAM PER MILLILITRE
  2. EMEND [Suspect]
     Active Substance: APREPITANT
     Indication: NAUSEA
     Dosage: UNK
     Dates: start: 20200229
  3. EMEND [Suspect]
     Active Substance: APREPITANT
     Indication: VOMITING
  4. GABAPENTIN. [Concomitant]
     Active Substance: GABAPENTIN
     Dosage: 450 MILLIGRAM

REACTIONS (2)
  - Therapeutic product effective for unapproved indication [Unknown]
  - Product use in unapproved indication [Unknown]

NARRATIVE: CASE EVENT DATE: 2020
